FAERS Safety Report 4447643-7 (Version None)
Quarter: 2004Q3

REPORT INFORMATION
  Report Type: 
  Country: None (occurrence: None)
  Receive Date: 20040823
  Receipt Date: 20040716
  Transmission Date: 20050211
  Serious: No
  Sender: FDA-Public Use
  Company Number: PHEH2004US07692

PATIENT
  Age: 76 Year
  Sex: Female

DRUGS (8)
  1. ZELNORM [Suspect]
     Indication: CONSTIPATION
     Dosage: 6 MG BID ORAL
     Route: 048
     Dates: start: 20040615
  2. ALTACE [Concomitant]
  3. CALCIUM CARBONATE [Concomitant]
  4. VITAMIN B-12 [Concomitant]
  5. CHROMIUM (CHROMIUM) [Concomitant]
  6. LIPITOR [Concomitant]
  7. METAMUCIL ^SEARLE^ (PSYLLIUM HYDROPHILIC MUCILLOID) [Concomitant]
  8. MIRALAX [Concomitant]

REACTIONS (4)
  - PRURITUS [None]
  - RASH [None]
  - SKIN BURNING SENSATION [None]
  - SLEEP DISORDER [None]
